FAERS Safety Report 10211091 (Version 1)
Quarter: 2014Q2

REPORT INFORMATION
  Report Type: Spontaneous
  Country: US (occurrence: None)
  Receive Date: 20140530
  Receipt Date: 20140530
  Transmission Date: 20141212
  Serious: Yes (Disabling, Other)
  Sender: FDA-Public Use
  Company Number: None

PATIENT
  Age: 73 Year
  Sex: Female
  Weight: 81.65 kg

DRUGS (18)
  1. LIPITOR [Suspect]
     Indication: BLOOD CHOLESTEROL INCREASED
     Dosage: 1 PILL DAILY, BY MOUTH
     Route: 048
     Dates: start: 2001, end: 2012
  2. CRESTOR [Suspect]
     Dosage: 1 PILL DAILY, BY MOUTH?
     Route: 048
  3. PRAVASTATIN [Suspect]
     Dosage: 1 PILL DAILY, BY MOUTH
     Route: 048
  4. INSULAN [Concomitant]
  5. PROCARDIA XL 60 MG [Concomitant]
  6. CARVEDORLOL 6.2 MG [Concomitant]
  7. CLONIDINE 0.1 MG AND 2 MG [Concomitant]
  8. LEVOTHYROXIN [Concomitant]
  9. Q-10 [Concomitant]
  10. B-12 CALCIUM [Concomitant]
  11. FOLIC ACID [Concomitant]
  12. FISH OIL [Concomitant]
  13. ASPIRIN 81MG [Concomitant]
  14. Q, 10 [Concomitant]
  15. B-12-D [Concomitant]
  16. FOLIC ACID OR B12 [Concomitant]
  17. FISH OIL [Concomitant]
  18. NASAL SALINE SPRAY [Concomitant]

REACTIONS (4)
  - Muscular weakness [None]
  - Hypoaesthesia [None]
  - Muscular weakness [None]
  - Pain in extremity [None]
